FAERS Safety Report 6000694-3 (Version None)
Quarter: 2008Q4

REPORT INFORMATION
  Report Type: 
  Country: None (occurrence: None)
  Receive Date: 20081215
  Receipt Date: 20081203
  Transmission Date: 20090506
  Serious: Yes (Other)
  Sender: FDA-Public Use
  Company Number: US-PFIZER INC-2008011155

PATIENT
  Sex: Female
  Weight: 63.5 kg

DRUGS (6)
  1. DILANTIN [Suspect]
     Indication: CEREBRAL HAEMORRHAGE
     Dosage: 100 MG, 3X/DAY
     Route: 048
  2. DILANTIN [Suspect]
     Indication: ANEURYSM
  3. ZESTRIL [Concomitant]
     Indication: HYPERTENSION
  4. ATIVAN [Concomitant]
     Dosage: UNK
  5. DARVOCET-N 100 [Concomitant]
     Dosage: UNK
  6. NORVASC [Concomitant]
     Dosage: UNK

REACTIONS (12)
  - BALANCE DISORDER [None]
  - CHILLS [None]
  - EYELID PTOSIS [None]
  - FATIGUE [None]
  - HOT FLUSH [None]
  - INSOMNIA [None]
  - OEDEMA PERIPHERAL [None]
  - PALPITATIONS [None]
  - PHOTOSENSITIVITY REACTION [None]
  - RASH MACULAR [None]
  - SINUSITIS [None]
  - VISION BLURRED [None]
